FAERS Safety Report 10659371 (Version 2)
Quarter: 2014Q4

REPORT INFORMATION
  Report Type: Report from Study
  Country: BR (occurrence: BR)
  Receive Date: 20141217
  Receipt Date: 20141219
  Transmission Date: 20150529
  Serious: Yes (Death, Other)
  Sender: FDA-Public Use
  Company Number: BR-ABBVIE-14K-020-1321992-00

PATIENT
  Sex: Male

DRUGS (1)
  1. HUMIRA [Suspect]
     Active Substance: ADALIMUMAB
     Indication: RHEUMATOID ARTHRITIS
     Route: 058

REACTIONS (5)
  - Chest injury [Fatal]
  - Rib fracture [Fatal]
  - Pleural effusion [Fatal]
  - Pneumothorax [Fatal]
  - Fall [Unknown]
